FAERS Safety Report 5057601-X (Version None)
Quarter: 2006Q3

REPORT INFORMATION
  Report Type: 
  Country: None (occurrence: None)
  Receive Date: 20060721
  Receipt Date: 20051214
  Transmission Date: 20061208
  Serious: No
  Sender: FDA-Public Use
  Company Number: US-GLAXOSMITHKLINE-A0585879A

PATIENT
  Age: 72 Year
  Sex: Female

DRUGS (5)
  1. AVANDIA [Suspect]
     Dosage: 8MG PER DAY
     Route: 048
  2. GLUCOVANCE [Concomitant]
  3. COZAAR [Concomitant]
  4. LIPITOR [Concomitant]
  5. ZOLOFT [Concomitant]

REACTIONS (2)
  - BLOOD GLUCOSE DECREASED [None]
  - WEIGHT INCREASED [None]
